FAERS Safety Report 9629233 (Version 1)
Quarter: 2013Q4

REPORT INFORMATION
  Report Type: Spontaneous
  Country: US (occurrence: US)
  Receive Date: 20131017
  Receipt Date: 20131017
  Transmission Date: 20140711
  Serious: Yes (Other)
  Sender: FDA-Public Use
  Company Number: US-JNJFOC-20131005169

PATIENT
  Sex: Female
  Weight: 108.86 kg

DRUGS (5)
  1. XARELTO [Suspect]
     Indication: CEREBROVASCULAR ACCIDENT PROPHYLAXIS
     Route: 048
     Dates: start: 20130815
  2. XARELTO [Suspect]
     Indication: ATRIAL FIBRILLATION
     Route: 048
     Dates: start: 20130815
  3. AMLODIPINE [Concomitant]
     Indication: BLOOD PRESSURE
     Route: 048
     Dates: start: 201201
  4. MULTAQ [Concomitant]
     Indication: ATRIAL FIBRILLATION
     Route: 048
     Dates: start: 20130815, end: 20131008
  5. MICARDIS HCT [Concomitant]
     Indication: BLOOD PRESSURE
     Dosage: 80-12.5 MG
     Route: 048

REACTIONS (2)
  - Cardiac ablation [Recovered/Resolved]
  - Endodontic procedure [Not Recovered/Not Resolved]
